FAERS Safety Report 16828209 (Version 3)
Quarter: 2019Q3

REPORT INFORMATION
  Report Type: Spontaneous
  Country: DE (occurrence: DE)
  Receive Date: 20190919
  Receipt Date: 20190929
  Transmission Date: 20191005
  Serious: Yes (Hospitalization, Other)
  Sender: FDA-Public Use
  Company Number: PHHY2019DE214271

PATIENT
  Age: 16 Year
  Sex: Male

DRUGS (6)
  1. PREDNISOLONE. [Suspect]
     Active Substance: PREDNISOLONE
     Indication: ACNE FULMINANS
     Dosage: 30 MG, QD
     Route: 048
  2. PREDNISOLONE. [Suspect]
     Active Substance: PREDNISOLONE
     Dosage: 20 MG, QD
     Route: 048
  3. FLUCLOXACILLIN [Concomitant]
     Active Substance: FLUCLOXACILLIN
     Indication: PRODUCT USED FOR UNKNOWN INDICATION
     Dosage: 3 G, QD
  4. MINOCYCLINE [Suspect]
     Active Substance: MINOCYCLINE HYDROCHLORIDE
     Indication: ACNE FULMINANS
     Dosage: 100 MG, QD
     Route: 048
  5. MIRTAZAPINE. [Concomitant]
     Active Substance: MIRTAZAPINE
     Indication: MENTAL DISORDER
     Dosage: 30 MG, QD
     Route: 065
  6. ISOTRETINOIN. [Suspect]
     Active Substance: ISOTRETINOIN
     Indication: ACNE CONGLOBATA
     Dosage: UNK UKN, UNK
     Route: 048

REACTIONS (17)
  - Skin lesion inflammation [Recovered/Resolved]
  - Leukocytosis [Recovered/Resolved]
  - Headache [Unknown]
  - Rash pustular [Recovered/Resolved]
  - Treatment failure [Recovered/Resolved]
  - Skin lesion [Recovered/Resolved]
  - Nodule [Recovered/Resolved]
  - C-reactive protein increased [Recovered/Resolved]
  - Cushing^s syndrome [Recovered/Resolved]
  - Staphylococcus test positive [Unknown]
  - Cushingoid [Unknown]
  - Weight increased [Unknown]
  - Contraindicated product administered [Unknown]
  - Propionibacterium test positive [Unknown]
  - Acne fulminans [Unknown]
  - Weight decreased [Unknown]
  - Drug ineffective [Unknown]
